FAERS Safety Report 10066105 (Version 2)
Quarter: 2014Q2

REPORT INFORMATION
  Report Type: Spontaneous
  Country: US (occurrence: US)
  Receive Date: 20140408
  Receipt Date: 20140408
  Transmission Date: 20141212
  Serious: No
  Sender: FDA-Public Use
  Company Number: US-ASTELLAS-2014US001174

PATIENT
  Age: 77 Year
  Sex: Female
  Weight: 61 kg

DRUGS (10)
  1. MYRBETRIQ [Suspect]
     Indication: HYPERTONIC BLADDER
     Dosage: 25 MG, ONCE DAILY
     Route: 048
     Dates: start: 20131214
  2. OMEPRAZOLE [Concomitant]
     Indication: DYSPEPSIA
     Dosage: 20 MG, DAILY
     Route: 048
  3. GLUCOSAMINE [Concomitant]
     Indication: ARTHRALGIA
     Dosage: ONE TABLET TWICE A DAY
     Route: 048
  4. CITALOPRAM [Concomitant]
     Indication: ANXIETY
     Dosage: 20 MG, DAILY
     Route: 048
  5. ALENDRONATE [Concomitant]
     Indication: OSTEOPOROSIS
     Dosage: 70 MG, WEEKLY
     Route: 048
  6. CEPHALEXIN                         /00145501/ [Concomitant]
     Indication: CYSTITIS
     Dosage: 250 MG, DAILY
     Route: 048
  7. AMITRIPTYLINE [Concomitant]
     Indication: ANXIETY
     Dosage: 25 MG, DAILY
     Route: 048
  8. IBUPROFEN [Concomitant]
     Indication: PRODUCT USED FOR UNKNOWN INDICATION
     Dosage: ONE TABLET ONCE A DAY
     Route: 048
  9. HYDROCODONE/APAP [Concomitant]
     Indication: PAIN IN EXTREMITY
     Dosage: ONE 5/500 MG TABLET, AS NEEDED
     Route: 048
  10. LOSARTAN [Concomitant]
     Indication: PRODUCT USED FOR UNKNOWN INDICATION
     Dosage: UNK
     Route: 065

REACTIONS (3)
  - Drug ineffective [Unknown]
  - Urinary incontinence [Unknown]
  - Pollakiuria [Unknown]
